FAERS Safety Report 13121817 (Version 1)
Quarter: 2017Q1

REPORT INFORMATION
  Report Type: Spontaneous
  Country: US (occurrence: US)
  Receive Date: 20170116
  Receipt Date: 20170116
  Transmission Date: 20170428
  Serious: Yes (Other)
  Sender: FDA-Public Use
  Company Number: None

PATIENT
  Age: 81 Year
  Sex: Female

DRUGS (1)
  1. LEVOFLOXACIN. [Suspect]
     Active Substance: LEVOFLOXACIN
     Indication: EVIDENCE BASED TREATMENT
     Dosage: ?          OTHER FREQUENCY:ONCE;?INTRAVENOUS (NOT OTHERWISE SPECIFIED) ?
     Route: 042

REACTIONS (2)
  - Pruritus [None]
  - Erythema [None]

NARRATIVE: CASE EVENT DATE: 20170112
